FAERS Safety Report 8339317-7 (Version None)
Quarter: 2012Q2

REPORT INFORMATION
  Report Type: 
  Country: None (occurrence: None)
  Receive Date: 20120507
  Receipt Date: 20120430
  Transmission Date: 20120825
  Serious: Yes (Hospitalization, Other)
  Sender: FDA-Public Use
  Company Number: SA-ACCORD-013387

PATIENT
  Age: 33 Year
  Sex: Female

DRUGS (3)
  1. LEVETIRACETAM [Suspect]
  2. LAMOTRIGINE [Suspect]
  3. PHENYTOIN [Suspect]

REACTIONS (3)
  - CROSS SENSITIVITY REACTION [None]
  - RASH MACULO-PAPULAR [None]
  - ANGIOEDEMA [None]
